FAERS Safety Report 6256886-1 (Version None)
Quarter: 2009Q3

REPORT INFORMATION
  Report Type: 
  Country: None (occurrence: None)
  Receive Date: 20090706
  Receipt Date: 20090630
  Transmission Date: 20100115
  Serious: Yes (Death)
  Sender: FDA-Public Use
  Company Number: PHHY2009IN26569

PATIENT
  Age: 62 Year
  Sex: Female

DRUGS (1)
  1. ZOMETA [Suspect]
     Dosage: ONCE IN SIX MONTHS

REACTIONS (2)
  - BLOOD GLUCOSE INCREASED [None]
  - HYPOTENSION [None]
